FAERS Safety Report 6186353-5 (Version None)
Quarter: 2009Q2

REPORT INFORMATION
  Report Type: 
  Country: None (occurrence: None)
  Receive Date: 20090511
  Receipt Date: 20090429
  Transmission Date: 20091009
  Serious: Yes (Life-Threatening, Other)
  Sender: FDA-Public Use
  Company Number: GB-PFIZER INC-2009205147

PATIENT
  Age: 64 Year

DRUGS (13)
  1. CHAMPIX [Suspect]
     Indication: SMOKING CESSATION THERAPY
     Dosage: 1 MG, 2X/DAY
     Dates: start: 20090101
  2. CETIRIZINE [Concomitant]
     Dosage: UNK
  3. COD-LIVER OIL [Concomitant]
     Dosage: UNK
  4. CYCLIZINE [Concomitant]
     Dosage: UNK
  5. GLUCOSAMINE SULFATE [Concomitant]
     Dosage: 1.5 G, 1X/DAY
  6. IRBESARTAN [Concomitant]
     Dosage: 1 DF, 1X/DAY
  7. HYDROCHLOROTHIAZIDE [Concomitant]
     Dosage: 1 DF, 1X/DAY
  8. PRAVASTATIN [Concomitant]
     Dosage: 10 MG, 1X/DAY
  9. SALAMOL [Concomitant]
     Dosage: 100 UG, UNK
     Route: 055
  10. SLOZEM [Concomitant]
     Dosage: 120 MG  UNK
  11. TRANSTEC TTS [Concomitant]
     Dosage: 52.5 UG, 1X/ HOUR
     Route: 062
  12. WARFARIN [Concomitant]
     Dosage: 1 MG  UNK
  13. WARFARIN [Concomitant]
     Dosage: 3 MG  UNK

REACTIONS (2)
  - INTERNATIONAL NORMALISED RATIO ABNORMAL [None]
  - TONGUE HAEMORRHAGE [None]
